FAERS Safety Report 4433385-0 (Version None)
Quarter: 2004Q3

REPORT INFORMATION
  Report Type: 
  Country: None (occurrence: None)
  Receive Date: 20040824
  Receipt Date: 20040811
  Transmission Date: 20050211
  Serious: Yes (Other)
  Sender: FDA-Public Use
  Company Number: 2004225092JP

PATIENT
  Age: 13 Year
  Sex: Male

DRUGS (1)
  1. GENOTROPIN [Suspect]
     Indication: RENAL FAILURE CHRONIC
     Dosage: 1.4 MG, QD, SUBCUTANEOUS
     Route: 058
     Dates: start: 20011004

REACTIONS (3)
  - BLOOD GLUCOSE INCREASED [None]
  - GLUCOSE TOLERANCE IMPAIRED [None]
  - GLYCOSYLATED HAEMOGLOBIN INCREASED [None]
